FAERS Safety Report 15930175 (Version 2)
Quarter: 2019Q1

REPORT INFORMATION
  Report Type: Other
  Country: RU (occurrence: RU)
  Receive Date: 20190206
  Receipt Date: 20190215
  Transmission Date: 20190417
  Serious: Yes (Other)
  Sender: FDA-Public Use
  Company Number: RU-PROVELL PHARMACEUTICALS-2062271

PATIENT
  Age: 64 Year
  Sex: Female

DRUGS (1)
  1. EUTHYROX [Suspect]
     Active Substance: LEVOTHYROXINE SODIUM
     Indication: HYPOTHYROIDISM

REACTIONS (2)
  - Follicular mucinosis [Recovering/Resolving]
  - Tubulointerstitial nephritis [None]
